FAERS Safety Report 7866701-8 (Version None)
Quarter: 2011Q4

REPORT INFORMATION
  Report Type: 
  Country: None (occurrence: None)
  Receive Date: 20111028
  Receipt Date: 20110803
  Transmission Date: 20120403
  Serious: No
  Sender: FDA-Public Use
  Company Number: US-GLAXOSMITHKLINE-A0939535A

PATIENT
  Age: 67 Year
  Sex: Male

DRUGS (5)
  1. CARDIZEM [Concomitant]
  2. VENTOLIN [Concomitant]
  3. ADVAIR DISKUS 100/50 [Suspect]
     Indication: ASTHMA
     Dosage: 1PUFF TWICE PER DAY
     Route: 055
     Dates: start: 20101101
  4. LISINOPRIL [Concomitant]
  5. FINASTERIDE [Concomitant]

REACTIONS (3)
  - PRODUCT QUALITY ISSUE [None]
  - ORAL DISCOMFORT [None]
  - DYSPNOEA [None]
